FAERS Safety Report 7613046-7 (Version None)
Quarter: 2011Q3

REPORT INFORMATION
  Report Type: 
  Country: None (occurrence: None)
  Receive Date: 20110708
  Receipt Date: 20110622
  Transmission Date: 20111222
  Serious: Yes (Hospitalization, Disabling)
  Sender: FDA-Public Use
  Company Number: THQ2011A03267

PATIENT
  Age: 56 Year
  Sex: Female

DRUGS (5)
  1. METFORMIN HYDROCHLORIDE, VILDAGLIPTIN [Concomitant]
  2. SOLOSA (GLIMPERIDE) [Concomitant]
  3. RAMIPRIL [Concomitant]
  4. COZAAR [Concomitant]
  5. ACTOS [Suspect]
     Indication: DIABETES MELLITUS
     Dosage: 30 MG (1 D);
     Dates: start: 20101001, end: 20110421

REACTIONS (3)
  - OCULAR ISCHAEMIC SYNDROME [None]
  - OPTIC DISC DISORDER [None]
  - PAPILLOEDEMA [None]
